FAERS Safety Report 6342216-3 (Version None)
Quarter: 2009Q3

REPORT INFORMATION
  Report Type: 
  Country: None (occurrence: None)
  Receive Date: 20090903
  Receipt Date: 20090903
  Transmission Date: 20100115
  Serious: Yes (Hospitalization)
  Sender: FDA-Public Use
  Company Number: None

PATIENT
  Sex: Female
  Weight: 52.6 kg

DRUGS (5)
  1. CARBOPLATIN [Suspect]
     Indication: OVARIAN CANCER
     Dosage: CARBO 601 MG EVERY 21 DAYS IV
     Route: 042
     Dates: start: 20090803, end: 20090803
  2. TAXOL [Suspect]
     Indication: OVARIAN CANCER
     Dosage: TAXOL 277MG EVERY 21 DAYS IV
     Route: 042
     Dates: start: 20090803, end: 20090803
  3. CARBOPLATIN [Suspect]
     Dosage: CARBO 495MG EVERY 21 DAYS IV
     Route: 042
     Dates: start: 20090824, end: 20090824
  4. TAXOL [Suspect]
     Dosage: TAXOL 275 EVERY 21 DAYS IV
     Route: 042
     Dates: start: 20090824, end: 20090824
  5. AVASTIN [Suspect]
     Dosage: EVERY 21 DAYS IV
     Dates: start: 20090824, end: 20090824

REACTIONS (3)
  - ABDOMINAL PAIN [None]
  - VAGINAL DISCHARGE [None]
  - VAGINAL HAEMORRHAGE [None]
